FAERS Safety Report 24247739 (Version 2)
Quarter: 2024Q4

REPORT INFORMATION
  Report Type: Spontaneous
  Country: US (occurrence: US)
  Receive Date: 20240826
  Receipt Date: 20241119
  Transmission Date: 20250114
  Serious: Yes (Hospitalization)
  Sender: UCB
  Company Number: US-UCBSA-2024041231

PATIENT
  Sex: Female
  Weight: 87.075 kg

DRUGS (1)
  1. BIMZELX [Suspect]
     Active Substance: BIMEKIZUMAB-BKZX
     Indication: Psoriasis
     Dosage: 320 MILLIGRAM, EV 4 WEEKS
     Route: 058
     Dates: start: 202405

REACTIONS (2)
  - Blood pressure decreased [Unknown]
  - Fall [Unknown]

NARRATIVE: CASE EVENT DATE: 20240101
